FAERS Safety Report 5985095-6 (Version None)
Quarter: 2008Q4

REPORT INFORMATION
  Report Type: 
  Country: None (occurrence: None)
  Receive Date: 20081208
  Receipt Date: 20081201
  Transmission Date: 20090506
  Serious: Yes (Other)
  Sender: FDA-Public Use
  Company Number: FR-MERCK-0812USA00417

PATIENT
  Age: 57 Year
  Sex: Female

DRUGS (4)
  1. DECADRON [Suspect]
     Indication: MULTIPLE MYELOMA
     Route: 048
  2. THALIDOMIDE [Suspect]
     Route: 065
  3. VINCRISTINE SULFATE [Suspect]
     Route: 065
  4. DOXORUBICIN [Suspect]
     Route: 065

REACTIONS (2)
  - DRUG INEFFECTIVE [None]
  - PANCYTOPENIA [None]
